FAERS Safety Report 9109294 (Version 2)
Quarter: 2013Q1

REPORT INFORMATION
  Report Type: Spontaneous
  Country: JP (occurrence: JP)
  Receive Date: 20130222
  Receipt Date: 20130328
  Transmission Date: 20140127
  Serious: Yes (Death)
  Sender: FDA-Public Use
  Company Number: PHHY2013JP017521

PATIENT
  Age: 77 Year
  Sex: Male
  Weight: 64 kg

DRUGS (8)
  1. DIOVAN [Suspect]
     Indication: HYPERTENSION
     Dosage: 160 MG, DAILY
     Route: 048
     Dates: start: 20070910
  2. ADALAT CR [Concomitant]
     Route: 048
  3. URINORM [Concomitant]
     Route: 048
  4. TRICOR [Concomitant]
     Route: 048
  5. BAYASPIRIN [Concomitant]
     Route: 048
  6. AMARYL [Concomitant]
     Route: 048
  7. LUPRAC [Concomitant]
     Route: 048
  8. LASIX [Concomitant]

REACTIONS (7)
  - Myocardial infarction [Fatal]
  - Blood glucose increased [Unknown]
  - C-reactive protein increased [Unknown]
  - Blood triglycerides decreased [Unknown]
  - Aspartate aminotransferase decreased [Unknown]
  - Blood creatinine increased [Unknown]
  - Blood urea increased [Unknown]
